FAERS Safety Report 7394591 (Version 2)
Quarter: 2014Q3

REPORT INFORMATION
  Report Type: Spontaneous
  Country: IT (occurrence: None)
  Receive Date: 20100513
  Receipt Date: 20140722
  Transmission Date: 20150326
  Serious: Yes (Hospitalization)
  Sender: FDA-Public Use
  Company Number: 582860

PATIENT
  Age: 45 Year
  Sex: Male
  Weight: 62.9 kg

DRUGS (11)
  1. METHYLPREDISOLONE [Suspect]
     Active Substance: METHYLPREDNISOLONE
     Indication: RHEUMATOID ARTHRITIS
     Dosage: 4 MG MILLIGRAM(S), (1 DAY) ORAL
     Route: 048
     Dates: start: 20070827
  2. PLACEBO [Suspect]
     Active Substance: UNSPECIFIED INGREDIENT
     Indication: RHEUMATOID ARTHRITIS
     Dosage: ONE DOSE, INTRAVENOUS
     Route: 042
     Dates: start: 20091013
  3. METFORMIN HYDROCHLORIDE. [Concomitant]
     Active Substance: METFORMIN HYDROCHLORIDE
  4. METHOTREXATE [Suspect]
     Active Substance: METHOTREXATE
     Indication: RHEUMATOID ARTHRITIS
     Dosage: 30MG EVERY 1 WEEKS, INTRAVENOUS
     Route: 042
     Dates: start: 20091013, end: 20091204
  5. GLIMEPIRIDE. [Concomitant]
     Active Substance: GLIMEPIRIDE
  6. REBAMIPIDE [Concomitant]
     Active Substance: REBAMIPIDE
  7. FOLIC ACID. [Concomitant]
     Active Substance: FOLIC ACID
  8. CELECOXIB. [Concomitant]
     Active Substance: CELECOXIB
  9. RANITIDINE [Concomitant]
     Active Substance: RANITIDINE\RANITIDINE HYDROCHLORIDE
  10. VOGLIBOSE [Concomitant]
     Active Substance: VOGLIBOSE
  11. ADCAL /00056901/ [Concomitant]
     Active Substance: CARBAZOCHROME

REACTIONS (4)
  - Wound infection staphylococcal [None]
  - Abscess [None]
  - Cellulitis [None]
  - Plantar fasciitis [None]

NARRATIVE: CASE EVENT DATE: 20100312
